FAERS Safety Report 9856701 (Version 3)
Quarter: 2015Q1

REPORT INFORMATION
  Report Type: Spontaneous
  Country: US (occurrence: US)
  Receive Date: 20140130
  Receipt Date: 20150126
  Transmission Date: 20150721
  Serious: Yes (Hospitalization, Other)
  Sender: FDA-Public Use
  Company Number: US-GLAXOSMITHKLINE-A1058783A

PATIENT
  Sex: Female

DRUGS (2)
  1. SORIATANE [Suspect]
     Active Substance: ACITRETIN
     Indication: ARTHRITIS
  2. SORIATANE [Suspect]
     Active Substance: ACITRETIN
     Indication: ILL-DEFINED DISORDER
     Dosage: 25 MG
     Route: 065
     Dates: start: 20130901

REACTIONS (4)
  - Bronchitis [Unknown]
  - Hospitalisation [Unknown]
  - Condition aggravated [Unknown]
  - Decreased immune responsiveness [Unknown]
